FAERS Safety Report 4720496-5 (Version None)
Quarter: 2005Q3

REPORT INFORMATION
  Report Type: 
  Country: None (occurrence: None)
  Receive Date: 20050721
  Receipt Date: 20041222
  Transmission Date: 20060218
  Serious: No
  Sender: FDA-Public Use
  Company Number: US-BRISTOL-MYERS SQUIBB COMPANY-12803797

PATIENT
  Age: 33 Year
  Sex: Male
  Weight: 73 kg

DRUGS (2)
  1. GLUCOVANCE [Suspect]
     Indication: DIABETES MELLITUS NON-INSULIN-DEPENDENT
     Route: 048
     Dates: start: 20020101
  2. GLUCOVANCE [Suspect]
     Dosage: 1.25MG/250MG DAILY
     Route: 048
     Dates: start: 20020101

REACTIONS (1)
  - ALANINE AMINOTRANSFERASE INCREASED [None]
